FAERS Safety Report 15120171 (Version 1)
Quarter: 2018Q3

REPORT INFORMATION
  Report Type: Report from Study
  Country: None (occurrence: US)
  Receive Date: 20180709
  Receipt Date: 20180709
  Transmission Date: 20181010
  Serious: Yes (Death)
  Sender: FDA-Public Use
  Company Number: US-BAUSCH-BL-2018-018750

PATIENT
  Age: 86 Year
  Sex: Female

DRUGS (2)
  1. XENAZINE [Suspect]
     Active Substance: TETRABENAZINE
     Indication: OFF LABEL USE
  2. XENAZINE [Suspect]
     Active Substance: TETRABENAZINE
     Indication: OROMANDIBULAR DYSTONIA
     Route: 048
     Dates: start: 2010

REACTIONS (2)
  - Off label use [Unknown]
  - Death [Fatal]

NARRATIVE: CASE EVENT DATE: 2010
